FAERS Safety Report 10482205 (Version 2)
Quarter: 2014Q4

REPORT INFORMATION
  Report Type: Spontaneous
  Country: CN (occurrence: CN)
  Receive Date: 20140929
  Receipt Date: 20141003
  Transmission Date: 20150528
  Serious: Yes (Hospitalization)
  Sender: FDA-Public Use
  Company Number: CN-SA-2014SA128678

PATIENT
  Age: 44 Year
  Sex: Female

DRUGS (2)
  1. INSULIN ASPART [Suspect]
     Active Substance: INSULIN ASPART
     Indication: TYPE 2 DIABETES MELLITUS
     Dosage: BEFORE THREE MEALS
     Route: 058
  2. INSULIN GLARGINE [Suspect]
     Active Substance: INSULIN GLARGINE
     Indication: TYPE 2 DIABETES MELLITUS
     Dosage: TOTAL OF 95 U/D
     Route: 058

REACTIONS (3)
  - Fall [Unknown]
  - Hypoglycaemic coma [Recovered/Resolved]
  - Lower limb fracture [Unknown]
